FAERS Safety Report 7466894-0 (Version None)
Quarter: 2011Q2

REPORT INFORMATION
  Report Type: 
  Country: None (occurrence: None)
  Receive Date: 20110509
  Receipt Date: 20100928
  Transmission Date: 20111010
  Serious: No
  Sender: FDA-Public Use
  Company Number: US-ALEXION-A201001240

PATIENT
  Sex: Female

DRUGS (5)
  1. LOVENOX [Concomitant]
     Dosage: UNK
  2. VITAMIN B12                        /00056201/ [Concomitant]
     Dosage: UNK
     Route: 048
  3. VITAMIN B6 [Concomitant]
     Dosage: UNK
     Route: 048
  4. SOLIRIS [Suspect]
     Indication: PAROXYSMAL NOCTURNAL HAEMOGLOBINURIA
     Dosage: 900 MG, Q2W
     Route: 042
  5. FOLIC ACID [Concomitant]
     Dosage: UNK
     Route: 048

REACTIONS (1)
  - RHINITIS SEASONAL [None]
